FAERS Safety Report 18563846 (Version 1)
Quarter: 2020Q4

REPORT INFORMATION
  Report Type: Other
  Country: AR (occurrence: AR)
  Receive Date: 20201201
  Receipt Date: 20201201
  Transmission Date: 20210114
  Serious: Yes (Hospitalization, Other)
  Sender: FDA-Public Use
  Company Number: AR-ROCHE-2035978

PATIENT
  Age: 63 Year
  Sex: Female

DRUGS (4)
  1. XOLAIR [Suspect]
     Active Substance: OMALIZUMAB
     Dosage: 2 DF, QMO
     Route: 058
     Dates: start: 2012, end: 201703
  2. XOLAIR [Suspect]
     Active Substance: OMALIZUMAB
     Route: 058
     Dates: start: 201712, end: 20200731
  3. XOLAIR [Suspect]
     Active Substance: OMALIZUMAB
     Indication: ASTHMA
     Dosage: 2 DF, QMO (300 MG)
     Route: 058
     Dates: start: 2009
  4. XOLAIR [Suspect]
     Active Substance: OMALIZUMAB
     Dosage: 2 DF, QMO
     Route: 058
     Dates: start: 20120318, end: 20191219

REACTIONS (34)
  - Syncope [Unknown]
  - Gait disturbance [Unknown]
  - Madarosis [Unknown]
  - Red blood cell count decreased [Not Recovered/Not Resolved]
  - Osteoporosis [Not Recovered/Not Resolved]
  - Immunoglobulins increased [Not Recovered/Not Resolved]
  - Insomnia [Unknown]
  - White blood cell count increased [Not Recovered/Not Resolved]
  - Nervousness [Not Recovered/Not Resolved]
  - Sciatica [Not Recovered/Not Resolved]
  - Chronic obstructive pulmonary disease [Unknown]
  - Visual impairment [Not Recovered/Not Resolved]
  - Productive cough [Not Recovered/Not Resolved]
  - Product container issue [Unknown]
  - Pseudomonas infection [Not Recovered/Not Resolved]
  - Cardiac disorder [Not Recovered/Not Resolved]
  - Memory impairment [Not Recovered/Not Resolved]
  - Pneumonia [Not Recovered/Not Resolved]
  - General physical health deterioration [Unknown]
  - Food allergy [Unknown]
  - Phlebitis [Unknown]
  - Spinal disorder [Not Recovered/Not Resolved]
  - Asthmatic crisis [Not Recovered/Not Resolved]
  - Eye infection fungal [Unknown]
  - Asthma [Not Recovered/Not Resolved]
  - Foot fracture [Unknown]
  - External ear inflammation [Not Recovered/Not Resolved]
  - Pneumonia [Not Recovered/Not Resolved]
  - Fall [Unknown]
  - Dyspnoea [Unknown]
  - Osteoarthritis [Unknown]
  - Snoring [Recovering/Resolving]
  - Fatigue [Not Recovered/Not Resolved]
  - Wheezing [Recovering/Resolving]

NARRATIVE: CASE EVENT DATE: 201403
